FAERS Safety Report 10030732 (Version 3)
Quarter: 2021Q2

REPORT INFORMATION
  Report Type: Spontaneous
  Country: US (occurrence: US)
  Receive Date: 20140323
  Receipt Date: 20210413
  Transmission Date: 20210716
  Serious: No
  Sender: FDA-Public Use
  Company Number: US-ALLERGAN-1401280US

PATIENT
  Sex: Female

DRUGS (2)
  1. LATISSE [Suspect]
     Active Substance: BIMATOPROST
     Dosage: UNK
     Route: 061
  2. LATISSE [Suspect]
     Active Substance: BIMATOPROST
     Indication: PRODUCT USED FOR UNKNOWN INDICATION
     Dosage: UNK (5 TIMES PER WEEK)
     Route: 061

REACTIONS (5)
  - Inappropriate schedule of product administration [Unknown]
  - Drug ineffective [Unknown]
  - Eye colour change [Unknown]
  - Nervousness [Unknown]
  - Erythema of eyelid [Unknown]
